FAERS Safety Report 6898324-1 (Version None)
Quarter: 2010Q3

REPORT INFORMATION
  Report Type: 
  Country: None (occurrence: None)
  Receive Date: 20100802
  Receipt Date: 20071011
  Transmission Date: 20110219
  Serious: No
  Sender: FDA-Public Use
  Company Number: US-PFIZER INC-2007067200

PATIENT
  Sex: Female
  Weight: 86.3 kg

DRUGS (10)
  1. LYRICA [Suspect]
     Indication: FIBROMYALGIA
     Dates: start: 20070101, end: 20070101
  2. NORVASC [Suspect]
     Indication: CORONARY ARTERY DISEASE
  3. VICODIN [Concomitant]
  4. FENTANYL [Concomitant]
  5. LIDOCAINE [Concomitant]
  6. SOMA [Concomitant]
  7. AMBIEN [Concomitant]
  8. HYDROCHLOROTHIAZIDE [Concomitant]
  9. TENORMIN [Concomitant]
  10. REQUIP [Concomitant]

REACTIONS (4)
  - ADVERSE EVENT [None]
  - FEELING ABNORMAL [None]
  - NAUSEA [None]
  - SWELLING [None]
